FAERS Safety Report 20694629 (Version 1)
Quarter: 2022Q2

REPORT INFORMATION
  Report Type: Report from Study
  Country: AR (occurrence: AR)
  Receive Date: 20220411
  Receipt Date: 20220411
  Transmission Date: 20220721
  Serious: Yes (Other)
  Sender: FDA-Public Use
  Company Number: AR-NOVARTISPH-NVSC2022AR024841

PATIENT
  Age: 52 Year
  Sex: Female

DRUGS (1)
  1. COSENTYX [Suspect]
     Active Substance: SECUKINUMAB
     Indication: Psoriatic arthropathy
     Dosage: 300 MG, QMO
     Route: 058
     Dates: start: 20210128

REACTIONS (26)
  - Brain neoplasm [Unknown]
  - Depression [Unknown]
  - Pneumonia [Unknown]
  - COVID-19 [Unknown]
  - Pulmonary calcification [Unknown]
  - Ear pain [Unknown]
  - Tinnitus [Unknown]
  - Headache [Unknown]
  - Inner ear inflammation [Unknown]
  - Balance disorder [Unknown]
  - Influenza [Unknown]
  - Arthralgia [Unknown]
  - Dry mouth [Unknown]
  - Eye pruritus [Unknown]
  - Immunisation reaction [Unknown]
  - Fatigue [Unknown]
  - Myalgia [Unknown]
  - Panic attack [Unknown]
  - Personality disorder [Unknown]
  - Amnesia [Unknown]
  - Hepatic steatosis [Unknown]
  - Trigeminal nerve disorder [Unknown]
  - Oral pain [Unknown]
  - Gingival pain [Unknown]
  - Toothache [Unknown]
  - Pain in jaw [Unknown]

NARRATIVE: CASE EVENT DATE: 20210301
